FAERS Safety Report 7964417-0 (Version None)
Quarter: 2011Q4

REPORT INFORMATION
  Report Type: 
  Country: None (occurrence: None)
  Receive Date: 20111205
  Receipt Date: 20111119
  Transmission Date: 20120403
  Serious: Yes (Hospitalization)
  Sender: FDA-Public Use
  Company Number: 2011AP002776

PATIENT
  Age: 40 Year
  Sex: Male

DRUGS (6)
  1. ZOLPIDEM [Concomitant]
  2. CITALOPRAM [Concomitant]
  3. LITHIUM CARBONATE [Suspect]
     Indication: PRODUCT USED FOR UNKNOWN INDICATION
     Dosage: 300 MG;TID
  4. TRAZODONE HCL [Suspect]
     Indication: INSOMNIA
     Dosage: HS
  5. FLUOXETINE [Concomitant]
  6. VALPROIC ACID [Concomitant]

REACTIONS (5)
  - NECK PAIN [None]
  - INSOMNIA [None]
  - ANTIPSYCHOTIC DRUG LEVEL BELOW THERAPEUTIC [None]
  - TRANSIENT ISCHAEMIC ATTACK [None]
  - VASOCONSTRICTION [None]
